FAERS Safety Report 7560893-6 (Version None)
Quarter: 2011Q2

REPORT INFORMATION
  Report Type: 
  Country: None (occurrence: None)
  Receive Date: 20110621
  Receipt Date: 20101215
  Transmission Date: 20111010
  Serious: No
  Sender: FDA-Public Use
  Company Number: US-ASTRAZENECA-2010SE57173

PATIENT
  Age: 49 Year
  Sex: Male

DRUGS (3)
  1. ATACAND HCT [Suspect]
     Route: 048
  2. ATACAND [Suspect]
     Route: 048
  3. TOPROL-XL [Suspect]
     Route: 048

REACTIONS (4)
  - OEDEMA PERIPHERAL [None]
  - WOUND SECRETION [None]
  - DRUG DOSE OMISSION [None]
  - LIMB INJURY [None]
